FAERS Safety Report 18970104 (Version 2)
Quarter: 2021Q1

REPORT INFORMATION
  Report Type: Spontaneous
  Country: CA (occurrence: CA)
  Receive Date: 20210304
  Receipt Date: 20210304
  Transmission Date: 20210420
  Serious: Yes (Other)
  Sender: FDA-Public Use
  Company Number: CA-PFIZER INC-2018320784

PATIENT
  Age: 70 Year
  Sex: Female

DRUGS (5)
  1. SULFASALAZINE. [Concomitant]
     Active Substance: SULFASALAZINE
     Dosage: 100 MG, 2X/DAY
     Route: 048
     Dates: start: 20151204
  2. ALENDRONATE D3 [Concomitant]
     Active Substance: ALENDRONATE SODIUM\CHOLECALCIFEROL
     Dosage: 1 DF, WEEKLY
     Route: 048
     Dates: start: 20151204
  3. ARAVA [Concomitant]
     Active Substance: LEFLUNOMIDE
     Dosage: 10 MG, 1X/DAY
     Route: 048
     Dates: start: 20180730, end: 2019
  4. XELJANZ [Suspect]
     Active Substance: TOFACITINIB CITRATE
     Indication: RHEUMATOID ARTHRITIS
     Dosage: 5 MG, 2X/DAY
     Route: 048
     Dates: start: 20170404, end: 202102
  5. ARAVA [Concomitant]
     Active Substance: LEFLUNOMIDE
     Dosage: 20 MG, 1X/DAY
     Route: 048
     Dates: start: 20190527

REACTIONS (2)
  - Breast cancer [Unknown]
  - Therapeutic product effect incomplete [Unknown]
